FAERS Safety Report 6754354-1 (Version None)
Quarter: 2010Q2

REPORT INFORMATION
  Report Type: 
  Country: None (occurrence: None)
  Receive Date: 20100603
  Receipt Date: 20100527
  Transmission Date: 20101027
  Serious: Yes (Other)
  Sender: FDA-Public Use
  Company Number: US-BRISTOL-MYERS SQUIBB COMPANY-15125271

PATIENT
  Age: 13 Month
  Sex: Male
  Weight: 9 kg

DRUGS (1)
  1. ATAZANAVIR [Suspect]
     Indication: HIV INFECTION
     Dosage: INTERRUPTED ON 18MAY10
     Route: 048
     Dates: start: 20090817

REACTIONS (1)
  - BLOOD ALKALINE PHOSPHATASE INCREASED [None]
